FAERS Safety Report 7420846-5 (Version None)
Quarter: 2011Q2

REPORT INFORMATION
  Report Type: 
  Country: None (occurrence: None)
  Receive Date: 20110418
  Receipt Date: 20110406
  Transmission Date: 20111010
  Serious: Yes (Other)
  Sender: FDA-Public Use
  Company Number: US-ROCHE-770312

PATIENT
  Age: 73 Year
  Sex: Male
  Weight: 80.9 kg

DRUGS (5)
  1. LENALIDOMIDE [Suspect]
     Indication: PROSTATE CANCER
     Dosage: DAYS 1-14, CYCLE: 21 DAYS, LAST DOSE: 01 MARCH 2010, TOTAL DOSE IN COURSE: 210 MG
     Route: 048
     Dates: start: 20090831
  2. PREDNISONE TAB [Suspect]
     Indication: PROSTATE CANCER
     Dosage: LAST DOSE: 07 MARCH 2010, TOTAL DOSE IN COURSE: 210 MG
     Route: 048
     Dates: start: 20090831
  3. BEVACIZUMAB [Suspect]
     Indication: PROSTATE CANCER
     Dosage: OVER 30-90 MINUTES ON DAY 1, LAST DOSE: 16 FEB 2010, TOTAL DOSE IN COURSE: 1310 MG
     Route: 042
     Dates: start: 20090831
  4. DOCETAXEL [Suspect]
     Indication: PROSTATE CANCER
     Dosage: OVER 60 MINUTES ON DAY 1, LAST DOSE: 16 FEB 2010, TOTAL DOSE IN COURSE: 149 MG
     Route: 042
     Dates: start: 20090831
  5. ZOLEDRONIC ACID [Concomitant]
     Dosage: REPORTED AS: ZOLENDRIC ACID

REACTIONS (1)
  - OSTEONECROSIS [None]
